FAERS Safety Report 6736302-3 (Version None)
Quarter: 2010Q2

REPORT INFORMATION
  Report Type: 
  Country: None (occurrence: None)
  Receive Date: 20100521
  Receipt Date: 20100514
  Transmission Date: 20101027
  Serious: Yes (Other)
  Sender: FDA-Public Use
  Company Number: GXKR2010GB05442

PATIENT
  Age: 66 Year
  Sex: Female
  Weight: 65 kg

DRUGS (6)
  1. OMEPRAZOLE [Suspect]
     Dosage: UNK
     Route: 048
     Dates: end: 20090101
  2. RABEPRAZOLE SODIUM [Suspect]
     Indication: HIATUS HERNIA
     Dosage: 40 MG, UNK
     Route: 048
     Dates: start: 20090101, end: 20100301
  3. ALFACALCIDOL [Concomitant]
     Indication: BLOOD CALCIUM DECREASED
     Dosage: 1 UG
     Route: 048
     Dates: start: 20050101
  4. ATENOLOL [Concomitant]
     Indication: HYPERTENSION
     Dosage: 50 MG
     Route: 048
     Dates: start: 20050101
  5. CALCICHEW [Concomitant]
     Indication: BLOOD CALCIUM DECREASED
     Dosage: 1.25 G, TID
     Route: 048
     Dates: start: 20050101
  6. PREMARIN [Concomitant]
     Indication: HORMONE REPLACEMENT THERAPY
     Dosage: 0.625 MG
     Route: 048
     Dates: start: 20050101, end: 20090901

REACTIONS (2)
  - HYPOMAGNESAEMIA [None]
  - PANCREATITIS ACUTE [None]
